FAERS Safety Report 21497050 (Version 2)
Quarter: 2023Q1

REPORT INFORMATION
  Report Type: Spontaneous
  Country: GB (occurrence: GB)
  Receive Date: 20221023
  Receipt Date: 20230106
  Transmission Date: 20230417
  Serious: Yes (Disabling, Other)
  Sender: FDA-Public Use
  Company Number: GB-AUROBINDO-AUR-APL-2022-043431

PATIENT
  Age: 22 Month
  Sex: Male

DRUGS (5)
  1. IBUPROFEN [Suspect]
     Active Substance: IBUPROFEN
     Indication: Patent ductus arteriosus
     Dosage: 15.4 MILLIGRAM (15.4 MILLIGRAM (STAT))
     Route: 040
  2. IBUPROFEN [Suspect]
     Active Substance: IBUPROFEN
     Dosage: 15 MILLIGRAM (15.4 MILLIGRAM, SINGLE (STAT))
     Route: 040
  3. IBUPROFEN [Suspect]
     Active Substance: IBUPROFEN
     Dosage: UNK (INITIAL DOSE OF 10MG/KG DOSE)
     Route: 040
     Dates: end: 2022
  4. CAFFEINE CITRATE [Concomitant]
     Active Substance: CAFFEINE CITRATE
     Indication: Product used for unknown indication
     Dosage: 7.7 MILLIGRAM, ONCE A DAY
     Route: 041
  5. OMEPRAZOLE [Concomitant]
     Active Substance: OMEPRAZOLE
     Indication: Product used for unknown indication
     Dosage: 3.08 MILLIGRAM, ONCE A DAY
     Route: 048

REACTIONS (1)
  - Thrombocytopenia neonatal [Recovering/Resolving]

NARRATIVE: CASE EVENT DATE: 20220930
